FAERS Safety Report 25555655 (Version 1)
Quarter: 2025Q3

REPORT INFORMATION
  Report Type: Report from Study
  Country: IN (occurrence: None)
  Receive Date: 20250715
  Receipt Date: 20250715
  Transmission Date: 20251021
  Serious: Yes (Other)
  Sender: SUPERNUS PHARMACEUTICALS, INC.
  Company Number: IN-SUPERNUS Pharmaceuticals, Inc.-SUP202507-002386

PATIENT
  Age: 8 Year
  Sex: Female

DRUGS (2)
  1. OXCARBAZEPINE [Suspect]
     Active Substance: OXCARBAZEPINE
     Indication: Epilepsy
  2. OXCARBAZEPINE [Suspect]
     Active Substance: OXCARBAZEPINE
     Indication: Autonomic seizure

REACTIONS (3)
  - Fall [Recovering/Resolving]
  - CSWS syndrome [Recovered/Resolved]
  - Atonic seizures [Recovered/Resolved]
